FAERS Safety Report 14910727 (Version 1)
Quarter: 2018Q2

REPORT INFORMATION
  Report Type: Spontaneous
  Country: US (occurrence: US)
  Receive Date: 20180517
  Receipt Date: 20180517
  Transmission Date: 20180711
  Serious: Yes (Hospitalization)
  Sender: FDA-Public Use
  Company Number: US-BEH-2018090665

PATIENT
  Sex: Female
  Weight: 68.27 kg

DRUGS (17)
  1. HIZENTRA [Suspect]
     Active Substance: HUMAN IMMUNOGLOBULIN G
     Indication: IMMUNODEFICIENCY COMMON VARIABLE
     Dosage: 9 G, QW
     Route: 058
     Dates: start: 20120809
  2. TOBRAMYCIN. [Concomitant]
     Active Substance: TOBRAMYCIN
  3. PREDNISONE. [Concomitant]
     Active Substance: PREDNISONE
  4. HIZENTRA [Suspect]
     Active Substance: HUMAN IMMUNOGLOBULIN G
     Dosage: 9 G, QW
     Route: 058
  5. LIDOCAINE/PRILOCAINE [Concomitant]
     Active Substance: LIDOCAINE\PRILOCAINE
  6. CLONAZEPAM. [Concomitant]
     Active Substance: CLONAZEPAM
  7. OXYGEN. [Concomitant]
     Active Substance: OXYGEN
  8. ZOLOFT [Concomitant]
     Active Substance: SERTRALINE HYDROCHLORIDE
  9. NAMENDA [Concomitant]
     Active Substance: MEMANTINE HYDROCHLORIDE
  10. ACETAMINOPHEN. [Concomitant]
     Active Substance: ACETAMINOPHEN
  11. MUCINEX [Concomitant]
     Active Substance: GUAIFENESIN
  12. TYLENOL [Concomitant]
     Active Substance: ACETAMINOPHEN
  13. HIZENTRA [Suspect]
     Active Substance: HUMAN IMMUNOGLOBULIN G
     Dosage: 9 G, QW
     Route: 058
  14. KEPPRA [Concomitant]
     Active Substance: LEVETIRACETAM
  15. EPINEPHRINE. [Concomitant]
     Active Substance: EPINEPHRINE
  16. SYNTHROID [Concomitant]
     Active Substance: LEVOTHYROXINE SODIUM
  17. DIPHENHYDRAMINE. [Concomitant]
     Active Substance: DIPHENHYDRAMINE

REACTIONS (2)
  - Mastoiditis [Unknown]
  - Pneumonia [Unknown]
